FAERS Safety Report 10214479 (Version 1)
Quarter: 2014Q2

REPORT INFORMATION
  Report Type: Spontaneous
  Country: FR (occurrence: FR)
  Receive Date: 20140603
  Receipt Date: 20140603
  Transmission Date: 20141212
  Serious: Yes (Hospitalization)
  Sender: FDA-Public Use
  Company Number: FR-PFIZER INC-2014146879

PATIENT
  Age: 96 Year
  Sex: Female

DRUGS (9)
  1. ZYVOXID [Suspect]
     Indication: BACTERAEMIA
     Dosage: 600 MG, 2X/DAY
     Route: 048
     Dates: start: 20140505, end: 20140519
  2. PIPERACILLINE / TAZOBACTAM MYLAN [Suspect]
     Indication: BACTERAEMIA
     Dosage: 4 G, 3X/DAY
     Route: 042
     Dates: start: 20140505, end: 20140512
  3. CIPROFLOXACIN MYLAN [Suspect]
     Indication: BACTERAEMIA
     Dosage: 500 MG, 1X/DAY
     Route: 048
     Dates: start: 20140505, end: 20140512
  4. LEVETIRACETAM MYLAN [Concomitant]
  5. DIFFU-K [Concomitant]
  6. LASILIX [Concomitant]
  7. TRANSIPEG [Concomitant]
  8. CALCIPARIN [Concomitant]
  9. DOLIPRANE [Concomitant]

REACTIONS (1)
  - Hypothermia [Not Recovered/Not Resolved]
